FAERS Safety Report 13432060 (Version 3)
Quarter: 2017Q2

REPORT INFORMATION
  Report Type: Spontaneous
  Country: US (occurrence: US)
  Receive Date: 20170412
  Receipt Date: 20170606
  Transmission Date: 20170830
  Serious: Yes (Hospitalization)
  Sender: FDA-Public Use
  Company Number: US-JNJFOC-20170315256

PATIENT
  Age: 58 Year
  Sex: Male

DRUGS (1)
  1. XARELTO [Suspect]
     Active Substance: RIVAROXABAN
     Indication: DEEP VEIN THROMBOSIS
     Dosage: DOSAGE BEGAN AS 15 MG TABLET AND WAS INCREASED TO 20 MG TABLET IN JAN-2015
     Route: 048
     Dates: start: 20141219, end: 20150630

REACTIONS (2)
  - Internal haemorrhage [Unknown]
  - Ischaemic stroke [Unknown]

NARRATIVE: CASE EVENT DATE: 201506
